FAERS Safety Report 12410691 (Version 2)
Quarter: 2016Q2

REPORT INFORMATION
  Report Type: Spontaneous
  Country: CH (occurrence: CH)
  Receive Date: 20160527
  Receipt Date: 20160601
  Transmission Date: 20160815
  Serious: Yes (Hospitalization, Other)
  Sender: FDA-Public Use
  Company Number: CH-ELI_LILLY_AND_COMPANY-CH201605007287

PATIENT
  Sex: Female

DRUGS (7)
  1. XELODA [Suspect]
     Active Substance: CAPECITABINE
     Indication: PRODUCT USED FOR UNKNOWN INDICATION
     Dosage: 1300 MG/M2, CYCLICAL
     Route: 065
     Dates: start: 20160120, end: 20160330
  2. GEMCITABINE HYDROCHLORIDE. [Suspect]
     Active Substance: GEMCITABINE HYDROCHLORIDE
     Dosage: D1 1000MG/M2, D8 700MG/M2
     Route: 065
     Dates: start: 20160211
  3. OXALIPLATIN. [Suspect]
     Active Substance: OXALIPLATIN
     Indication: PRODUCT USED FOR UNKNOWN INDICATION
     Dosage: 70 MG/M2, CYCLICAL
     Route: 065
     Dates: start: 20150827, end: 20151101
  4. GEMCITABINE HYDROCHLORIDE. [Suspect]
     Active Substance: GEMCITABINE HYDROCHLORIDE
     Dosage: D1 1000 MG/M2, D8 900MG/M2
     Route: 065
     Dates: start: 20160120
  5. GEMCITABINE HYDROCHLORIDE. [Suspect]
     Active Substance: GEMCITABINE HYDROCHLORIDE
     Indication: PRODUCT USED FOR UNKNOWN INDICATION
     Dosage: 1000 MG/M2, CYCLICAL
     Route: 065
     Dates: start: 20150827, end: 20151101
  6. GEMCITABINE HYDROCHLORIDE. [Suspect]
     Active Substance: GEMCITABINE HYDROCHLORIDE
     Dosage: D1 1000MG/M2, D8 500MG/M2
     Route: 065
     Dates: start: 20160304, end: 20160330
  7. GEMCITABINE HYDROCHLORIDE. [Suspect]
     Active Substance: GEMCITABINE HYDROCHLORIDE
     Dosage: UNK, CYCLICAL
     Route: 065
     Dates: start: 20160325, end: 20160330

REACTIONS (8)
  - Malignant neoplasm progression [Unknown]
  - Palmar-plantar erythrodysaesthesia syndrome [Unknown]
  - Polyneuropathy [Unknown]
  - Off label use [Unknown]
  - Dizziness [Unknown]
  - Febrile neutropenia [Unknown]
  - Fall [Unknown]
  - Laceration [Unknown]

NARRATIVE: CASE EVENT DATE: 20160124
